FAERS Safety Report 6484606-4 (Version None)
Quarter: 2009Q4

REPORT INFORMATION
  Report Type: 
  Country: None (occurrence: None)
  Receive Date: 20091204
  Receipt Date: 20091123
  Transmission Date: 20100525
  Serious: Yes (Other)
  Sender: FDA-Public Use
  Company Number: 1000010076

PATIENT
  Age: 89 Year
  Sex: Female
  Weight: 48 kg

DRUGS (4)
  1. MEMANTINE HCL [Suspect]
     Indication: DEMENTIA ALZHEIMER'S TYPE
     Dosage: 10 MG (10 MG, 1 IN 1 D), ORAL
     Route: 048
     Dates: start: 20090606, end: 20090610
  2. DONEPEZIL HYDROCHLORIDE [Concomitant]
  3. CELIPROLOL (TABLETS) [Concomitant]
  4. DAFALGAN (TABLETS) [Concomitant]

REACTIONS (1)
  - COMPLEX PARTIAL SEIZURES [None]
